FAERS Safety Report 5485117-5 (Version None)
Quarter: 2007Q4

REPORT INFORMATION
  Report Type: 
  Country: None (occurrence: None)
  Receive Date: 20071009
  Receipt Date: 20071009
  Transmission Date: 20080405
  Serious: Yes (Hospitalization)
  Sender: FDA-Public Use
  Company Number: None

PATIENT
  Sex: Female
  Weight: 57.27 kg

DRUGS (3)
  1. CETUXIMAB [Suspect]
     Indication: TONGUE NEOPLASM MALIGNANT STAGE UNSPECIFIED
     Dosage: 250MG/M2 = 62.8MG WEEKLY IV
     Route: 042
     Dates: start: 20070919, end: 20071001
  2. TAXOL [Suspect]
     Indication: TONGUE NEOPLASM MALIGNANT STAGE UNSPECIFIED
     Dosage: 40 MG/M2 = 63MG WEEKLY IV
     Route: 042
     Dates: start: 20070919, end: 20071001
  3. CARBOPLATIN [Suspect]
     Indication: TONGUE NEOPLASM MALIGNANT STAGE UNSPECIFIED
     Dosage: AUC = 1 = 85MG WEEKLY IV
     Route: 042
     Dates: start: 20070919, end: 20071001

REACTIONS (13)
  - ALPHA HAEMOLYTIC STREPTOCOCCAL INFECTION [None]
  - CATHETER SITE DISCHARGE [None]
  - DIARRHOEA [None]
  - DYSURIA [None]
  - ENTEROBACTER INFECTION [None]
  - MUCOSAL INFLAMMATION [None]
  - NAUSEA [None]
  - NEUTROPHIL COUNT ABNORMAL [None]
  - ORAL PAIN [None]
  - PURULENT DISCHARGE [None]
  - PYREXIA [None]
  - STAPHYLOCOCCAL INFECTION [None]
  - WEIGHT DECREASED [None]
